FAERS Safety Report 4380115-7 (Version None)
Quarter: 2004Q2

REPORT INFORMATION
  Report Type: 
  Country: None (occurrence: None)
  Receive Date: 20040616
  Receipt Date: 20040426
  Transmission Date: 20050107
  Serious: Yes (Death)
  Sender: FDA-Public Use
  Company Number: 2004S1001203

PATIENT
  Age: 79 Year
  Sex: Female

DRUGS (22)
  1. CLOZAPINE [Suspect]
     Indication: SCHIZOPHRENIA
     Dosage: 50MG QID, ORAL
     Route: 048
     Dates: start: 20001101
  2. RISPERIDONE [Concomitant]
  3. FUROSEMIDE [Concomitant]
  4. POTASSIUM CHLORRIDE [Concomitant]
  5. BENAZEPRIL HCL [Concomitant]
  6. AMLODIPINE [Concomitant]
  7. LANSOPRAZOLE [Concomitant]
  8. LACTASE [Concomitant]
  9. ACETAMINOPHEN [Concomitant]
  10. ALBUTEROL [Concomitant]
  11. BISACODYL [Concomitant]
  12. CARRINGTON MOIST BARRIER CREAM (APPLY PRN) [Concomitant]
  13. CLONAZEPAM [Concomitant]
  14. HYDROZYZINE [Concomitant]
  15. LEVOFLOXACIN [Concomitant]
  16. METHYLPREDNISOLONE [Concomitant]
  17. MILK OF MAGNESIA TAB [Concomitant]
  18. POLYETHYLENE GLYCOL [Concomitant]
  19. NYSTATIN [Concomitant]
  20. CEFTRIAONE [Concomitant]
  21. TRIAMCINOLONE CREAM 0.1% [Concomitant]
  22. AZITHROMYCIN [Concomitant]

REACTIONS (1)
  - DEATH [None]
